FAERS Safety Report 13727152 (Version 1)
Quarter: 2017Q3

REPORT INFORMATION
  Report Type: Spontaneous
  Country: US (occurrence: US)
  Receive Date: 20170706
  Receipt Date: 20170706
  Transmission Date: 20171127
  Serious: Yes (Hospitalization)
  Sender: FDA-Public Use
  Company Number: US-ELI_LILLY_AND_COMPANY-US201608001505

PATIENT
  Age: 10 Year
  Sex: Male
  Weight: 57.3 kg

DRUGS (8)
  1. CYMBALTA [Suspect]
     Active Substance: DULOXETINE HYDROCHLORIDE
     Indication: PRODUCT USED FOR UNKNOWN INDICATION
     Dosage: UNK, UNKNOWN
     Route: 065
     Dates: start: 20141022
  2. CYMBALTA [Suspect]
     Active Substance: DULOXETINE HYDROCHLORIDE
     Indication: DEPRESSION
     Dosage: 60 MG, DAILY
     Route: 065
     Dates: start: 201411
  3. CONCERTA [Concomitant]
     Active Substance: METHYLPHENIDATE HYDROCHLORIDE
     Indication: PRODUCT USED FOR UNKNOWN INDICATION
     Dosage: 18 MG, UNKNOWN
     Route: 065
     Dates: start: 20141024
  4. MOTRIN [Concomitant]
     Active Substance: IBUPROFEN
     Indication: PRODUCT USED FOR UNKNOWN INDICATION
     Dosage: UNK, UNKNOWN
     Route: 065
  5. METHYLPHENIDATE. [Concomitant]
     Active Substance: METHYLPHENIDATE
     Indication: PRODUCT USED FOR UNKNOWN INDICATION
     Dosage: 10 MG, BID
     Route: 065
     Dates: start: 20141118
  6. RITALIN [Concomitant]
     Active Substance: METHYLPHENIDATE HYDROCHLORIDE
     Indication: PRODUCT USED FOR UNKNOWN INDICATION
     Dosage: UNK, UNKNOWN
     Route: 065
     Dates: start: 201410
  7. CONCERTA [Concomitant]
     Active Substance: METHYLPHENIDATE HYDROCHLORIDE
     Dosage: 36 MG, UNKNOWN
     Route: 065
     Dates: start: 20141118
  8. CYMBALTA [Suspect]
     Active Substance: DULOXETINE HYDROCHLORIDE
     Indication: ATTENTION DEFICIT/HYPERACTIVITY DISORDER

REACTIONS (28)
  - Unresponsive to stimuli [Unknown]
  - Confusional state [Unknown]
  - Abnormal behaviour [Unknown]
  - Agitation [Unknown]
  - Blood glucose increased [Unknown]
  - Encephalitis autoimmune [Unknown]
  - Myalgia [Unknown]
  - Infection [Unknown]
  - Hallucinations, mixed [Unknown]
  - Blood potassium decreased [Unknown]
  - Mental disorder [Unknown]
  - Mydriasis [Unknown]
  - Vomiting [Unknown]
  - Monocyte count increased [Unknown]
  - CSF glucose increased [Unknown]
  - Urine abnormality [Unknown]
  - Hypertension [Unknown]
  - Headache [Unknown]
  - Crying [Unknown]
  - Anxiety [Unknown]
  - Lethargy [Unknown]
  - Dyskinesia [Unknown]
  - Serotonin syndrome [Unknown]
  - Drug withdrawal syndrome [Unknown]
  - Overdose [Unknown]
  - Altered state of consciousness [Unknown]
  - Seizure [Unknown]
  - Dizziness [Unknown]

NARRATIVE: CASE EVENT DATE: 20141130
